FAERS Safety Report 9035394 (Version 1)
Quarter: 2013Q1

REPORT INFORMATION
  Report Type: Report from Study
  Country: US (occurrence: US)
  Receive Date: 20130129
  Receipt Date: 20130129
  Transmission Date: 20140127
  Serious: No
  Sender: FDA-Public Use
  Company Number: US-ABBOTT-12P-163-0897442-00

PATIENT
  Sex: Female
  Weight: 4.9 kg

DRUGS (8)
  1. HUMIRA 40 MG/ 0.8 ML PRE-FILLED SYRINGE [Suspect]
     Indication: PSORIASIS
     Dosage: ONCE
     Dates: start: 201108, end: 201108
  2. HUMIRA 40 MG/ 0.8 ML PRE-FILLED SYRINGE [Suspect]
     Dosage: ONCE, 1 WEEK LATER
     Dates: start: 201108, end: 201108
  3. HUMIRA 40 MG/ 0.8 ML PRE-FILLED SYRINGE [Suspect]
     Dosage: 1 WEEK LATER
     Dates: start: 201109
  4. METHOTREXATE [Concomitant]
     Indication: PSORIASIS
     Dates: start: 201112
  5. LISINOPRIL [Concomitant]
     Indication: HYPERTENSION
  6. CITALOPRAM [Concomitant]
     Indication: ANXIETY
  7. TRAZADONE [Concomitant]
     Indication: ANXIETY
  8. FOLIC ACID [Concomitant]
     Indication: PRODUCT USED FOR UNKNOWN INDICATION

REACTIONS (3)
  - Myalgia [Not Recovered/Not Resolved]
  - Paraesthesia [Recovered/Resolved]
  - Arthralgia [Unknown]
